FAERS Safety Report 15756279 (Version 1)
Quarter: 2018Q4

REPORT INFORMATION
  Report Type: Report from Study
  Country: CA (occurrence: CA)
  Receive Date: 20181224
  Receipt Date: 20181224
  Transmission Date: 20190205
  Serious: Yes (Other)
  Sender: FDA-Public Use
  Company Number: CA-ROCHE-1457467

PATIENT
  Age: 82 Year
  Sex: Male

DRUGS (19)
  1. RITUXAN [Suspect]
     Active Substance: RITUXIMAB
     Route: 042
     Dates: start: 20140905
  2. K CITRATE [Concomitant]
  3. AMLODIPINE [Concomitant]
     Active Substance: AMLODIPINE BESYLATE
  4. COUMADIN [Concomitant]
     Active Substance: WARFARIN SODIUM
  5. METHYLPREDNISOLONE. [Concomitant]
     Active Substance: METHYLPREDNISOLONE
     Indication: PREMEDICATION
     Route: 042
     Dates: start: 20140829, end: 20181207
  6. TRAJENTA [Concomitant]
     Active Substance: LINAGLIPTIN
  7. ACETAMINOPHEN. [Concomitant]
     Active Substance: ACETAMINOPHEN
     Indication: PREMEDICATION
     Route: 048
     Dates: start: 20140829
  8. PREDNISONE. [Concomitant]
     Active Substance: PREDNISONE
  9. HYDROCHLOROTHIAZIDE. [Concomitant]
     Active Substance: HYDROCHLOROTHIAZIDE
  10. SYNTHROID [Concomitant]
     Active Substance: LEVOTHYROXINE SODIUM
  11. DIPHENHYDRAMINE HCL [Concomitant]
     Active Substance: DIPHENHYDRAMINE HYDROCHLORIDE
     Indication: PREMEDICATION
     Route: 048
     Dates: start: 20140829
  12. DIAMICRON MR [Concomitant]
     Active Substance: GLICLAZIDE
  13. ZYLOPRIM [Concomitant]
     Active Substance: ALLOPURINOL
  14. IRBESARTAN. [Concomitant]
     Active Substance: IRBESARTAN
  15. MESTINON [Suspect]
     Active Substance: PYRIDOSTIGMINE BROMIDE
     Indication: PRODUCT USED FOR UNKNOWN INDICATION
     Route: 065
  16. EURO D [Concomitant]
  17. TRAVATAN Z [Concomitant]
     Active Substance: TRAVOPROST
  18. ATIVAN [Concomitant]
     Active Substance: LORAZEPAM
  19. RITUXAN [Suspect]
     Active Substance: RITUXIMAB
     Indication: MYASTHENIA GRAVIS
     Dosage: PREVIOUS RITUXIMAB INFUSION RECEIVED ON 07/DEC/2018
     Route: 042
     Dates: start: 20140829, end: 20181207

REACTIONS (7)
  - Dysuria [Unknown]
  - Infusion related reaction [Recovered/Resolved]
  - Myasthenia gravis [Unknown]
  - Drug hypersensitivity [Unknown]
  - Off label use [Unknown]
  - Medication error [Unknown]
  - Angina unstable [Unknown]

NARRATIVE: CASE EVENT DATE: 201610
